FAERS Safety Report 5062399-5 (Version None)
Quarter: 2006Q3

REPORT INFORMATION
  Report Type: 
  Country: None (occurrence: None)
  Receive Date: 20060721
  Receipt Date: 20060703
  Transmission Date: 20061208
  Serious: Yes (Hospitalization)
  Sender: FDA-Public Use
  Company Number: TW200603007338

PATIENT
  Age: 24 Year
  Sex: Male

DRUGS (2)
  1. ZYPREXA [Suspect]
     Indication: BIPOLAR DISORDER
     Dosage: 5 MG, DAILY (1/D) ORAL
     Route: 048
     Dates: start: 20050126
  2. HERBAL PREPARATION [Concomitant]

REACTIONS (11)
  - ABNORMAL BEHAVIOUR [None]
  - ALBUMIN GLOBULIN RATIO DECREASED [None]
  - BIPOLAR I DISORDER [None]
  - BLOOD ALBUMIN INCREASED [None]
  - CONDITION AGGRAVATED [None]
  - LYMPHOCYTE PERCENTAGE INCREASED [None]
  - MANIA [None]
  - NEUTROPHIL PERCENTAGE DECREASED [None]
  - PARANOIA [None]
  - PERSECUTORY DELUSION [None]
  - SCHIZOPHRENIA [None]
